FAERS Safety Report 22229763 (Version 3)
Quarter: 2023Q2

REPORT INFORMATION
  Report Type: Spontaneous
  Country: US (occurrence: US)
  Receive Date: 20230419
  Receipt Date: 20230601
  Transmission Date: 20230722
  Serious: No
  Sender: FDA-Public Use
  Company Number: US-ALLERGAN-2303875US

PATIENT
  Sex: Female

DRUGS (3)
  1. CYCLOSPORINE [Suspect]
     Active Substance: CYCLOSPORINE
     Indication: Product used for unknown indication
     Dosage: 2 GTT
  2. CYCLOSPORINE [Suspect]
     Active Substance: CYCLOSPORINE
     Indication: Product used for unknown indication
     Dosage: 1 DROP IN EACH EYE EVERY 2 - 3 DAY
  3. CYCLOSPORINE [Suspect]
     Active Substance: CYCLOSPORINE

REACTIONS (5)
  - Inappropriate schedule of product administration [Unknown]
  - Multiple use of single-use product [Unknown]
  - Product storage error [Unknown]
  - Eye irritation [Unknown]
  - Product colour issue [Unknown]
